FAERS Safety Report 4851014-9 (Version None)
Quarter: 2005Q4

REPORT INFORMATION
  Report Type: 
  Country: None (occurrence: None)
  Receive Date: 20051212
  Receipt Date: 20051013
  Transmission Date: 20060501
  Serious: Yes (Life-Threatening)
  Sender: FDA-Public Use
  Company Number: PHRM2005FR02730

PATIENT
  Age: 80 Year
  Sex: Male

DRUGS (1)
  1. EXELON [Suspect]
     Indication: DEMENTIA
     Dosage: 1.5 MG, BID
     Route: 048
     Dates: start: 20030101

REACTIONS (4)
  - CATATONIA [None]
  - COMA [None]
  - DISTURBANCE IN ATTENTION [None]
  - MAJOR DEPRESSION [None]
